FAERS Safety Report 18896195 (Version 12)
Quarter: 2023Q1

REPORT INFORMATION
  Report Type: Report from Study
  Country: DE (occurrence: DE)
  Receive Date: 20210216
  Receipt Date: 20230228
  Transmission Date: 20230417
  Serious: Yes (Other)
  Sender: FDA-Public Use
  Company Number: DE-CELLTRION INC.-2021DE001496

PATIENT

DRUGS (9)
  1. RITUXIMAB [Suspect]
     Active Substance: RITUXIMAB
     Indication: Neuromyelitis optica spectrum disorder
     Dosage: UNK, PHARMACEUTICAL DOSE FORM: INFUSION, SOLUTION
     Route: 042
     Dates: start: 2021, end: 2021
  2. RITUXIMAB [Suspect]
     Active Substance: RITUXIMAB
     Indication: Secondary progressive multiple sclerosis
     Dosage: PER BODYWEIGHT/ EVERY 14 DAYSPHARMACEUTICAL DOSE FORM: INFUSION, SOLUTION
     Route: 042
     Dates: start: 20190429
  3. RITUXIMAB [Suspect]
     Active Substance: RITUXIMAB
     Dosage: UNK, PHARMACEUTICAL DOSE FORM: INFUSION, SOLUTION
     Route: 042
     Dates: start: 202006
  4. CHOLECALCIFEROL [Concomitant]
     Active Substance: CHOLECALCIFEROL
  5. NOVAMINE [Concomitant]
     Active Substance: ALANINE\ARGININE\ASPARTIC ACID\GLUTAMIC ACID\GLYCINE\HISTIDINE\ISOLEUCINE\LEUCINE\LYSINE ACETATE\MET
  6. IBUPROFEN [Concomitant]
     Active Substance: IBUPROFEN
     Dosage: AS REQUIRED
  7. PANTOPRAZOLE [Concomitant]
     Active Substance: PANTOPRAZOLE
     Dosage: UNK
  8. PREGABALIN [Concomitant]
     Active Substance: PREGABALIN
  9. ASPIRIN [Concomitant]
     Active Substance: ASPIRIN
     Dosage: 100 MG

REACTIONS (13)
  - Angina pectoris [Recovered/Resolved]
  - Coronavirus infection [Recovered/Resolved]
  - Neuralgia [Recovered/Resolved]
  - Visual impairment [Recovered/Resolved]
  - Abdominal pain [Recovered/Resolved]
  - Conjunctivitis [Recovered/Resolved]
  - Fatigue [Recovered/Resolved]
  - Gait disturbance [Not Recovered/Not Resolved]
  - Gastrointestinal disorder [Recovered/Resolved]
  - Nasopharyngitis [Recovered/Resolved]
  - Nausea [Recovered/Resolved]
  - Vomiting [Recovered/Resolved]
  - Off label use [Unknown]

NARRATIVE: CASE EVENT DATE: 20190429
